FAERS Safety Report 9928742 (Version 1)
Quarter: 2014Q1

REPORT INFORMATION
  Report Type: Spontaneous
  Country: IT (occurrence: None)
  Receive Date: 20140225
  Receipt Date: 20140225
  Transmission Date: 20141002
  Serious: Yes (Other)
  Sender: FDA-Public Use
  Company Number: 2191174

PATIENT
  Age: 59 Year
  Sex: Female

DRUGS (1)
  1. (OXALIPLATIN) [Suspect]
     Indication: CHEMOTHERAPY
     Dosage: 230 MG, TOTAL
     Route: 042
     Dates: start: 20140130, end: 20140130

REACTIONS (3)
  - Paraesthesia [None]
  - Suffocation feeling [None]
  - Infusion related reaction [None]
